FAERS Safety Report 6912636-4 (Version None)
Quarter: 2010Q3

REPORT INFORMATION
  Report Type: 
  Country: None (occurrence: None)
  Receive Date: 20100806
  Receipt Date: 20100721
  Transmission Date: 20110219
  Serious: Yes (Hospitalization)
  Sender: FDA-Public Use
  Company Number: CL-AMGEN-US409432

PATIENT
  Age: 45 Year
  Sex: Female

DRUGS (4)
  1. ENBREL [Suspect]
     Indication: RHEUMATOID ARTHRITIS
     Dates: start: 20080331, end: 20100408
  2. MEDROL [Concomitant]
  3. CELEBRA [Concomitant]
     Dates: start: 20070111
  4. METHOTREXATE [Concomitant]
     Dosage: 10 MG; UNSPECIFIED FREQUENCY
     Dates: start: 20080630, end: 20100408

REACTIONS (4)
  - ATELECTASIS [None]
  - COUGH [None]
  - PULMONARY TUBERCULOSIS [None]
  - RHEUMATOID NODULE [None]
